FAERS Safety Report 14419248 (Version 1)
Quarter: 2018Q1

REPORT INFORMATION
  Report Type: Spontaneous
  Country: US (occurrence: US)
  Receive Date: 20180120
  Receipt Date: 20180120
  Transmission Date: 20180509
  Serious: Yes (Disabling, Other)
  Sender: FDA-Public Use
  Company Number: None

PATIENT
  Age: 54 Year
  Sex: Female
  Weight: 90.45 kg

DRUGS (12)
  1. PRISTIQ EXTENDED-RELEASE [Concomitant]
     Active Substance: DESVENLAFAXINE SUCCINATE
  2. HYDROCODONE [Concomitant]
     Active Substance: HYDROCODONE
  3. BENADRYL [Concomitant]
     Active Substance: DIPHENHYDRAMINE HYDROCHLORIDE
  4. MULTIVITAMIN [Concomitant]
     Active Substance: VITAMINS
  5. IRON [Concomitant]
     Active Substance: IRON
  6. PROLIA [Suspect]
     Active Substance: DENOSUMAB
     Indication: OSTEOPOROSIS
     Dosage: 1 INJECTION(S); EVERY 6 MONTHS; INTRAMUSCULAR
     Route: 030
     Dates: start: 20171130, end: 20171201
  7. PREVICID [Concomitant]
  8. FLEXERIL [Concomitant]
     Active Substance: CYCLOBENZAPRINE HYDROCHLORIDE
  9. LASIX [Concomitant]
     Active Substance: FUROSEMIDE
  10. FIBER [Concomitant]
     Active Substance: PSYLLIUM HUSK
  11. VITAMIN D [Concomitant]
     Active Substance: CHOLECALCIFEROL
  12. LISINOPRIL. [Concomitant]
     Active Substance: LISINOPRIL

REACTIONS (8)
  - Insomnia [None]
  - Ulcer [None]
  - Nasal ulcer [None]
  - Urine output decreased [None]
  - Peripheral swelling [None]
  - Diarrhoea [None]
  - Pain [None]
  - Eye infection [None]

NARRATIVE: CASE EVENT DATE: 20171201
